FAERS Safety Report 24655447 (Version 1)
Quarter: 2024Q4

REPORT INFORMATION
  Report Type: Spontaneous
  Country: US (occurrence: US)
  Receive Date: 20241123
  Receipt Date: 20241123
  Transmission Date: 20250115
  Serious: Yes (Hospitalization, Other)
  Sender: NATCO PHARMA
  Company Number: US-NATCO-000025

PATIENT
  Age: 74 Year
  Sex: Female

DRUGS (2)
  1. PACLITAXEL [Suspect]
     Active Substance: PACLITAXEL
     Indication: Ovarian cancer
     Dosage: INITIAL DOSE WAS UNKNOWN AND LATER DOSE WAS DECREASED
     Route: 040
  2. CARBOPLATIN [Suspect]
     Active Substance: CARBOPLATIN
     Indication: Ovarian cancer
     Dosage: AFTER THE DOSE DECREASED, DRUG WAS DISCONTINUED
     Route: 040

REACTIONS (2)
  - Squamous cell carcinoma of skin [Recovered/Resolved]
  - Thrombocytopenia [Unknown]
